FAERS Safety Report 12957120 (Version 4)
Quarter: 2017Q1

REPORT INFORMATION
  Report Type: Spontaneous
  Country: DE (occurrence: DE)
  Receive Date: 20161118
  Receipt Date: 20170223
  Transmission Date: 20170428
  Serious: Yes (Life-Threatening, Hospitalization, Other)
  Sender: FDA-Public Use
  Company Number: DE-JNJFOC-20161115577

PATIENT
  Age: 71 Year
  Sex: Male
  Weight: 130 kg

DRUGS (3)
  1. DARATUMUMAB [Suspect]
     Active Substance: DARATUMUMAB
     Indication: PLASMACYTOMA
     Route: 042
     Dates: start: 20160927
  2. DARATUMUMAB [Suspect]
     Active Substance: DARATUMUMAB
     Indication: PLASMACYTOMA
     Route: 042
     Dates: start: 20161004
  3. DARATUMUMAB [Suspect]
     Active Substance: DARATUMUMAB
     Indication: PLASMACYTOMA
     Dosage: LAST DOSE
     Route: 042
     Dates: start: 20161011, end: 20161011

REACTIONS (11)
  - Dizziness [Recovered/Resolved]
  - Cardiovascular insufficiency [Recovered/Resolved]
  - Asthenia [Recovered/Resolved]
  - Bronchitis [Unknown]
  - Oedema [Recovered/Resolved]
  - General physical health deterioration [Recovered/Resolved]
  - Hyperchromic anaemia [Unknown]
  - Pleural effusion [Unknown]
  - Pericarditis [Recovered/Resolved]
  - Atrial fibrillation [Recovered/Resolved]
  - Acute kidney injury [Recovered/Resolved]

NARRATIVE: CASE EVENT DATE: 201610
